FAERS Safety Report 10425957 (Version 3)
Quarter: 2015Q3

REPORT INFORMATION
  Report Type: Report from Study
  Country: US (occurrence: US)
  Receive Date: 20140903
  Receipt Date: 20150824
  Transmission Date: 20151125
  Serious: Yes (Hospitalization)
  Sender: FDA-Public Use
  Company Number: US-BIOGENIDEC-2014BI083803

PATIENT
  Sex: Female

DRUGS (9)
  1. PERCOCET [Concomitant]
     Active Substance: ACETAMINOPHEN\OXYCODONE HYDROCHLORIDE
  2. ZANTAC [Concomitant]
     Active Substance: RANITIDINE HYDROCHLORIDE
  3. TECFIDERA [Suspect]
     Active Substance: DIMETHYL FUMARATE
     Indication: MULTIPLE SCLEROSIS
     Route: 048
     Dates: start: 20130830
  4. XANAX [Concomitant]
     Active Substance: ALPRAZOLAM
  5. TECFIDERA [Suspect]
     Active Substance: DIMETHYL FUMARATE
     Indication: MULTIPLE SCLEROSIS
     Route: 048
     Dates: start: 20130823, end: 20130829
  6. TIZANIDINE. [Concomitant]
     Active Substance: TIZANIDINE
  7. KEPPRA [Concomitant]
     Active Substance: LEVETIRACETAM
  8. INSULIN [Concomitant]
     Active Substance: INSULIN NOS
  9. MIRTAZAPINE. [Concomitant]
     Active Substance: MIRTAZAPINE

REACTIONS (1)
  - Diabetic ketoacidosis [Unknown]
